FAERS Safety Report 9996483 (Version 3)
Quarter: 2014Q4

REPORT INFORMATION
  Report Type: Spontaneous
  Country: US (occurrence: US)
  Receive Date: 20140311
  Receipt Date: 20141119
  Transmission Date: 20150529
  Serious: Yes (Hospitalization)
  Sender: FDA-Public Use
  Company Number: US-BAYER-2014-036338

PATIENT
  Age: 46 Year
  Sex: Female
  Weight: 54.42 kg

DRUGS (15)
  1. OCELLA [Suspect]
     Active Substance: DROSPIRENONE\ETHINYL ESTRADIOL
     Indication: CONTRACEPTION
  2. METHYLPREDNISOLON [Concomitant]
     Active Substance: METHYLPREDNISOLONE
     Dosage: 40 MG, UNK
  3. LIOTHYRONINE SODIUM. [Concomitant]
     Active Substance: LIOTHYRONINE SODIUM
     Dosage: 100 %, UNK
     Dates: start: 20090319, end: 20111213
  4. PREDNISONE. [Concomitant]
     Active Substance: PREDNISONE
     Dosage: 5 DAYS
     Dates: start: 20110926
  5. VICODIN [Concomitant]
     Active Substance: ACETAMINOPHEN\HYDROCODONE BITARTRATE
  6. LEVOXYL [Concomitant]
     Active Substance: LEVOTHYROXINE SODIUM
     Dosage: 125 MCG/24HR, UNK
     Route: 048
     Dates: start: 20080919, end: 20101215
  7. LEXAPRO [Concomitant]
     Active Substance: ESCITALOPRAM OXALATE
     Dosage: 10 MG, UNK
  8. LIDODERM [Concomitant]
     Active Substance: LIDOCAINE
  9. NORCO [Concomitant]
     Active Substance: ACETAMINOPHEN\HYDROCODONE BITARTRATE
  10. YASMIN [Suspect]
     Active Substance: DROSPIRENONE\ETHINYL ESTRADIOL
     Indication: ACNE
  11. YASMIN [Suspect]
     Active Substance: DROSPIRENONE\ETHINYL ESTRADIOL
     Indication: CONTRACEPTION
     Dosage: UNK
     Dates: start: 2005, end: 201010
  12. OCELLA [Suspect]
     Active Substance: DROSPIRENONE\ETHINYL ESTRADIOL
     Indication: ACNE
     Dosage: UNK
     Dates: start: 2005, end: 201010
  13. LEVOTHYROXINE [Concomitant]
     Active Substance: LEVOTHYROXINE
  14. LIDEX [Concomitant]
     Active Substance: FLUOCINONIDE
     Dosage: 0.05% APPLY 2 TIMES DAILY
     Route: 061
     Dates: start: 20100910, end: 20101018
  15. T3 [Concomitant]
     Active Substance: LIOTHYRONINE SODIUM
     Dosage: 4 MCG DAILY
     Dates: start: 20080326, end: 20120521

REACTIONS (8)
  - Abdominal pain [None]
  - Pain [Recovered/Resolved]
  - Pulmonary embolism [Recovered/Resolved]
  - Vena cava thrombosis [None]
  - Pelvic venous thrombosis [None]
  - General physical health deterioration [Recovered/Resolved]
  - Pulmonary embolism [Recovered/Resolved]
  - Injury [Recovered/Resolved]

NARRATIVE: CASE EVENT DATE: 20101005
